FAERS Safety Report 9384566 (Version 2)
Quarter: 2013Q3

REPORT INFORMATION
  Report Type: Spontaneous
  Country: US (occurrence: US)
  Receive Date: 20130705
  Receipt Date: 20130801
  Transmission Date: 20140515
  Serious: No
  Sender: FDA-Public Use
  Company Number: US-BAYER-2013-081899

PATIENT
  Sex: Male
  Weight: 79.37 kg

DRUGS (7)
  1. BETASERON [Suspect]
     Indication: MULTIPLE SCLEROSIS
     Dosage: UNK
     Dates: end: 2007
  2. CRESTOR [Concomitant]
  3. DOXAZOSIN [Concomitant]
  4. NEXIUM [Concomitant]
  5. ONGLYZA [Concomitant]
  6. VITAMIN D [Concomitant]
  7. COPAXONE [Concomitant]

REACTIONS (2)
  - Liver function test abnormal [Recovering/Resolving]
  - Hepatic function abnormal [Recovered/Resolved]
